FAERS Safety Report 8115526-7 (Version None)
Quarter: 2012Q1

REPORT INFORMATION
  Report Type: 
  Country: None (occurrence: None)
  Receive Date: 20120206
  Receipt Date: 20120124
  Transmission Date: 20120608
  Serious: Yes (Death, Other)
  Sender: FDA-Public Use
  Company Number: SK-ELI_LILLY_AND_COMPANY-SK201112004154

PATIENT
  Age: 57 Year
  Sex: Male

DRUGS (6)
  1. CALTRATE PLUS                      /06018001/ [Concomitant]
  2. LODOZ                              /01166101/ [Concomitant]
  3. QUINAPRIL HCL [Concomitant]
  4. ANTIEPILEPTICS [Concomitant]
     Indication: EPILEPSY
  5. AFLAMIN [Concomitant]
  6. FORTEO [Suspect]
     Indication: OSTEOPOROSIS
     Dosage: 20 UG, QD
     Route: 058
     Dates: start: 20100707, end: 20111204

REACTIONS (6)
  - HEMIPLEGIA [None]
  - MYOCARDIAL INFARCTION [None]
  - HAEMORRHAGIC STROKE [None]
  - THORACIC VERTEBRAL FRACTURE [None]
  - THORACIC HAEMORRHAGE [None]
  - BRAIN OEDEMA [None]
